FAERS Safety Report 24996774 (Version 1)
Quarter: 2025Q1

REPORT INFORMATION
  Report Type: Spontaneous
  Country: CN (occurrence: CN)
  Receive Date: 20250221
  Receipt Date: 20250221
  Transmission Date: 20250409
  Serious: Yes (Hospitalization)
  Sender: ELI LILLY AND COMPANY
  Company Number: CN-Merck Healthcare KGaA-2025007941

PATIENT
  Age: 80 Year
  Sex: Female
  Weight: 52 kg

DRUGS (6)
  1. ERBITUX [Suspect]
     Active Substance: CETUXIMAB
     Indication: Colon cancer
     Route: 041
     Dates: start: 20250122, end: 20250122
  2. OXALIPLATIN [Suspect]
     Active Substance: OXALIPLATIN
     Indication: Colon cancer
     Dosage: 100 MG, DAILY
     Route: 041
     Dates: start: 20250122, end: 20250122
  3. FLUOROURACIL [Suspect]
     Active Substance: FLUOROURACIL
     Indication: Colon cancer
     Dosage: 2.8 G, DAILY
     Route: 041
     Dates: start: 20250122, end: 20250123
  4. FLUOROURACIL [Suspect]
     Active Substance: FLUOROURACIL
     Dosage: 0.46 G, DAILY
     Route: 041
     Dates: start: 20250122, end: 20250124
  5. SODIUM CHLORIDE [Concomitant]
     Active Substance: SODIUM CHLORIDE
     Indication: Colon cancer
     Dosage: 50 ML, DAILY
     Route: 041
     Dates: start: 20250122, end: 20250124
  6. DEXTROSE [Concomitant]
     Active Substance: DEXTROSE MONOHYDRATE
     Indication: Colon cancer
     Dosage: 500 ML, DAILY
     Route: 041
     Dates: start: 20250122, end: 20250122

REACTIONS (2)
  - White blood cell count decreased [Unknown]
  - Neutrophil count decreased [Unknown]

NARRATIVE: CASE EVENT DATE: 20250210
